FAERS Safety Report 9142638 (Version 2)
Quarter: 2013Q2

REPORT INFORMATION
  Report Type: Report from Study
  Country: BR (occurrence: BR)
  Receive Date: 20130306
  Receipt Date: 20130508
  Transmission Date: 20140414
  Serious: Yes (Other)
  Sender: FDA-Public Use
  Company Number: PHHY2013BR021249

PATIENT
  Age: 53 Year
  Sex: Female

DRUGS (7)
  1. GALVUS MET [Suspect]
     Indication: DIABETES MELLITUS
     Dosage: 2 DF (1000 MG METF/50 MG VILD), DAILY
     Route: 048
     Dates: start: 2010
  2. DIOVAN AMLO FIX [Suspect]
     Indication: HYPERTENSION
     Dosage: 1 DF (160 MG VALS/ 5 MG AMLO), DAILY
     Route: 048
     Dates: start: 2010
  3. CIBRATO [Concomitant]
     Indication: BLOOD TRIGLYCERIDES INCREASED
     Dosage: 1 DF (100 MG), DAILY
     Route: 048
     Dates: start: 201011
  4. LIPITOR [Concomitant]
     Indication: HYPERCHOLESTEROLAEMIA
     Dosage: 1 DF (40 MG), DAILY
     Route: 048
     Dates: start: 201011
  5. REDUCLIM [Concomitant]
     Indication: HORMONE THERAPY
     Dosage: 2.5 MG, DAILY
     Route: 048
     Dates: start: 201011
  6. PANTOPRAZOLE [Concomitant]
     Indication: GASTROOESOPHAGEAL REFLUX PROPHYLAXIS
     Dosage: 2 DF (40 MG), DAILY
     Route: 048
     Dates: start: 201011
  7. CENTRUM [Concomitant]
     Indication: MEDICAL DIET
     Dosage: 1 DF, DAILY
     Route: 048
     Dates: start: 201011

REACTIONS (2)
  - Dengue fever [Recovered/Resolved]
  - Pain [Recovered/Resolved]
